FAERS Safety Report 17041816 (Version 2)
Quarter: 2020Q1

REPORT INFORMATION
  Report Type: Spontaneous
  Country: BR (occurrence: BR)
  Receive Date: 20191118
  Receipt Date: 20200126
  Transmission Date: 20200409
  Serious: Yes (Other)
  Sender: FDA-Public Use
  Company Number: BR-AMGEN-BRASP2019190060

PATIENT
  Age: 65 Year
  Sex: Female

DRUGS (1)
  1. ENBREL [Suspect]
     Active Substance: ETANERCEPT
     Indication: PRODUCT USED FOR UNKNOWN INDICATION
     Dosage: 50 MG, UNK
     Route: 065
     Dates: end: 2018

REACTIONS (5)
  - Drug ineffective [Unknown]
  - Carpal tunnel syndrome [Unknown]
  - Loss of personal independence in daily activities [Unknown]
  - Rheumatoid arthritis [Unknown]
  - Tendon disorder [Unknown]
